FAERS Safety Report 14519261 (Version 2)
Quarter: 2018Q1

REPORT INFORMATION
  Report Type: Spontaneous
  Country: US (occurrence: US)
  Receive Date: 20180212
  Receipt Date: 20180307
  Transmission Date: 20180509
  Serious: Yes (Life-Threatening, Other)
  Sender: FDA-Public Use
  Company Number: US-PFIZER INC-2018056738

PATIENT
  Age: 56 Year
  Sex: Male

DRUGS (1)
  1. EFFEXOR XR [Suspect]
     Active Substance: VENLAFAXINE HYDROCHLORIDE
     Dosage: UNK

REACTIONS (10)
  - Cardiac arrest [Unknown]
  - Myocardial infarction [Unknown]
  - Cervical vertebral fracture [Unknown]
  - Heart rate decreased [Unknown]
  - Suicidal ideation [Unknown]
  - Atrial fibrillation [Unknown]
  - Nervousness [Unknown]
  - Heart rate irregular [Unknown]
  - Depression [Unknown]
  - Tremor [Unknown]

NARRATIVE: CASE EVENT DATE: 2016
